FAERS Safety Report 18375756 (Version 1)
Quarter: 2020Q4

REPORT INFORMATION
  Report Type: Spontaneous
  Country: US (occurrence: US)
  Receive Date: 20201009
  Receipt Date: 20201009
  Transmission Date: 20210114
  Serious: Yes (Other)
  Sender: FDA-Public Use
  Company Number: None

PATIENT
  Age: 40 Year
  Sex: Female
  Weight: 108 kg

DRUGS (9)
  1. PHENERGAN [Suspect]
     Active Substance: PROMETHAZINE HYDROCHLORIDE
     Indication: MIGRAINE
     Route: 058
     Dates: start: 20201008, end: 20201009
  2. VIMPAT [Concomitant]
     Active Substance: LACOSAMIDE
  3. EFFEXOR [Concomitant]
     Active Substance: VENLAFAXINE HYDROCHLORIDE
  4. FYCOMPA [Concomitant]
     Active Substance: PERAMPANEL
  5. ONE-A-DAY NOS [Concomitant]
     Active Substance: MINERALS\VITAMINS
  6. LAMICTAL [Concomitant]
     Active Substance: LAMOTRIGINE
  7. PHENERGAN [Suspect]
     Active Substance: PROMETHAZINE HYDROCHLORIDE
     Indication: NAUSEA
     Route: 058
     Dates: start: 20201008, end: 20201009
  8. VITAMIN B COMPLEX [Concomitant]
     Active Substance: CYANOCOBALAMIN\DEXPANTHENOL\NIACINAMIDE\PYRIDOXINE HYDROCHLORIDE\RIBOFLAVIN 5^-PHOSPHATE SODIUM\THIAMINE HYDROCHLORIDE\VITAMIN B COMPLEX
  9. TRILEPTAL [Concomitant]
     Active Substance: OXCARBAZEPINE

REACTIONS (5)
  - Diarrhoea [None]
  - Faeces pale [None]
  - Haematochezia [None]
  - Abdominal pain [None]
  - Abdominal pain upper [None]

NARRATIVE: CASE EVENT DATE: 20201009
